FAERS Safety Report 10165891 (Version 2)
Quarter: 2014Q2

REPORT INFORMATION
  Report Type: Spontaneous
  Country: US (occurrence: US)
  Receive Date: 20140510
  Receipt Date: 20140510
  Transmission Date: 20141212
  Serious: No
  Sender: FDA-Public Use
  Company Number: US201103003680

PATIENT
  Age: 67 Year
  Sex: Female
  Weight: 86.17 kg

DRUGS (6)
  1. BYETTA PEN DISPOSABLE [Suspect]
     Indication: TYPE 2 DIABETES MELLITUS
     Route: 058
  2. BYETTA PEN DISPOSABLE [Suspect]
     Indication: TYPE 2 DIABETES MELLITUS
     Route: 058
  3. BYDUREON [Suspect]
     Indication: TYPE 2 DIABETES MELLITUS
     Dosage: LOT# 73907; EXP: JUN16?2MG/WEEK-16FEB14-ONG
     Route: 058
     Dates: start: 20140216
  4. EXENATIDE 5MCG PEN, DISPOSABLE DEVICE [Concomitant]
  5. EXENATIDE 5MCG PEN, DISPOSABLE DEVICE [Concomitant]
  6. METFORMIN [Concomitant]
     Indication: TYPE 2 DIABETES MELLITUS
     Dosage: 500MG- 2/D
     Route: 048

REACTIONS (3)
  - Injection site bruising [Not Recovered/Not Resolved]
  - Injection site pain [Not Recovered/Not Resolved]
  - Underdose [Recovered/Resolved]
